FAERS Safety Report 6621221-3 (Version None)
Quarter: 2010Q1

REPORT INFORMATION
  Report Type: 
  Country: None (occurrence: None)
  Receive Date: 20100309
  Receipt Date: 20100223
  Transmission Date: 20100710
  Serious: No
  Sender: FDA-Public Use
  Company Number: US-BIOGENIDEC-2010BI006175

PATIENT
  Age: 25 Year
  Sex: Female

DRUGS (2)
  1. AVONEX [Suspect]
     Indication: MULTIPLE SCLEROSIS
     Route: 030
     Dates: start: 20061104, end: 20071214
  2. AVONEX [Suspect]
     Route: 030
     Dates: start: 20080415

REACTIONS (3)
  - FALL [None]
  - HYPOAESTHESIA FACIAL [None]
  - NEUROPATHY PERIPHERAL [None]
